FAERS Safety Report 5423568-5 (Version None)
Quarter: 2007Q3

REPORT INFORMATION
  Report Type: 
  Country: None (occurrence: None)
  Receive Date: 20070821
  Receipt Date: 20070821
  Transmission Date: 20080115
  Serious: Yes (Hospitalization)
  Sender: FDA-Public Use
  Company Number: None

PATIENT
  Age: 21 Year
  Sex: Female

DRUGS (3)
  1. TYSABRI [Suspect]
     Indication: MULTIPLE SCLEROSIS
     Dosage: IV INFUSION
     Route: 042
     Dates: start: 20070314
  2. YASMIN [Concomitant]
  3. ACYCLOVIR [Concomitant]

REACTIONS (6)
  - BLOOD PRESSURE DIASTOLIC DECREASED [None]
  - CHEST DISCOMFORT [None]
  - HEART RATE INCREASED [None]
  - INFLUENZA LIKE ILLNESS [None]
  - INFUSION RELATED REACTION [None]
  - THROAT TIGHTNESS [None]
